FAERS Safety Report 4363162-0 (Version None)
Quarter: 2004Q2

REPORT INFORMATION
  Report Type: 
  Country: None (occurrence: None)
  Receive Date: 20040524
  Receipt Date: 20030324
  Transmission Date: 20050107
  Serious: No
  Sender: FDA-Public Use
  Company Number: US-GLAXOSMITHKLINE-A0401586A

PATIENT
  Age: 81 Year
  Sex: Female

DRUGS (2)
  1. BACTROBAN [Suspect]
     Indication: DERMATITIS
     Route: 061
     Dates: start: 20030318, end: 20030318
  2. ANTIBIOTIC [Concomitant]

REACTIONS (3)
  - BURNING SENSATION [None]
  - ERYTHEMA [None]
  - PRURITUS [None]
